FAERS Safety Report 4945966-6 (Version None)
Quarter: 2006Q1

REPORT INFORMATION
  Report Type: 
  Country: None (occurrence: None)
  Receive Date: 20060127
  Receipt Date: 20041222
  Transmission Date: 20060701
  Serious: Yes (Other)
  Sender: FDA-Public Use
  Company Number: PHEH2004US13590

PATIENT
  Age: 35 Year
  Sex: Male
  Weight: 72.1 kg

DRUGS (3)
  1. LUDIOMIL [Suspect]
     Dosage: SEE IMAGE
  2. WELLBUTRIN SR [Suspect]
     Indication: BIPOLAR DISORDER
     Dosage: 150 MG, BID
     Dates: start: 20040912
  3. SYMBYAX (FLUOXETINE, OLANZAPINE) [Suspect]
     Dosage: 12/50MG

REACTIONS (7)
  - BLOOD GLUCOSE INCREASED [None]
  - DRUG ADMINISTRATION ERROR [None]
  - FALL [None]
  - GRAND MAL CONVULSION [None]
  - JOINT DISLOCATION [None]
  - LOSS OF CONSCIOUSNESS [None]
  - UPPER LIMB FRACTURE [None]
